FAERS Safety Report 18512313 (Version 1)
Quarter: 2020Q4

REPORT INFORMATION
  Report Type: Spontaneous
  Country: US (occurrence: US)
  Receive Date: 20201117
  Receipt Date: 20201117
  Transmission Date: 20210114
  Serious: Yes (Hospitalization, Other)
  Sender: FDA-Public Use
  Company Number: US-B.I. PHARMACEUTICALS,INC./RIDGEFIELD-2020-BI-061049

PATIENT
  Age: 52 Year
  Sex: Female

DRUGS (3)
  1. CATAPRES [Suspect]
     Active Substance: CLONIDINE HYDROCHLORIDE
     Dosage: UNIT DOSE: 0.2 MG?FREQUENCY: 4-6X A DAY
     Route: 065
     Dates: start: 201911
  2. CATAPRES [Suspect]
     Active Substance: CLONIDINE HYDROCHLORIDE
     Indication: HYPERTENSION
     Dosage: 0.1MG, 2 TABLETS 4X A DAY
     Route: 065
     Dates: start: 2006, end: 201911
  3. CATAPRES-TTS [Suspect]
     Active Substance: CLONIDINE
     Indication: HYPERTENSION
     Dosage: UNIT DOSE: TTS-1?FREQUENCY: ONCE A WEEK
     Dates: start: 2006, end: 2006

REACTIONS (2)
  - Myocardial infarction [Recovered/Resolved]
  - Peripheral swelling [Recovered/Resolved]

NARRATIVE: CASE EVENT DATE: 2006
